FAERS Safety Report 19138788 (Version 1)
Quarter: 2021Q2

REPORT INFORMATION
  Report Type: Spontaneous
  Country: GB (occurrence: GB)
  Receive Date: 20210415
  Receipt Date: 20210415
  Transmission Date: 20210717
  Serious: Yes (Disabling, Other)
  Sender: FDA-Public Use
  Company Number: GB-TEVA-2021-GB-1899873

PATIENT
  Age: 61 Year
  Sex: Female
  Weight: 84.36 kg

DRUGS (5)
  1. FELODIPINE. [Concomitant]
     Active Substance: FELODIPINE
     Indication: ILL-DEFINED DISORDER
  2. INFLUENZA H1N1 VACCINE NOS [Concomitant]
     Active Substance: INFLUENZA VIRUS VACCINE, SWINE
     Indication: ILL-DEFINED DISORDER
  3. ALENDRONIC ACID [Suspect]
     Active Substance: ALENDRONIC ACID
     Indication: OSTEOPENIA
     Dosage: 70MG
     Route: 048
     Dates: start: 20210327, end: 20210327
  4. BISOPROLOL FUMARATE (2:1) [Concomitant]
     Indication: ILL-DEFINED DISORDER
  5. INDAPAMIDE. [Concomitant]
     Active Substance: INDAPAMIDE
     Indication: ILL-DEFINED DISORDER

REACTIONS (4)
  - Pain in jaw [Recovered/Resolved]
  - Back pain [Recovered/Resolved]
  - Arthralgia [Recovered/Resolved]
  - Diarrhoea [Recovered/Resolved]

NARRATIVE: CASE EVENT DATE: 20210327
